FAERS Safety Report 9708563 (Version 1)
Quarter: 2013Q4

REPORT INFORMATION
  Report Type: Report from Study
  Country: ES (occurrence: ES)
  Receive Date: 20131125
  Receipt Date: 20131125
  Transmission Date: 20140711
  Serious: Yes (Other)
  Sender: FDA-Public Use
  Company Number: ES-SA-2013SA121571

PATIENT
  Sex: 0

DRUGS (7)
  1. OXALIPLATIN [Suspect]
     Indication: GASTROOESOPHAGEAL CANCER
     Dosage: GIVEN ON DAY 1, 3 WEEKLY SCHEDULE
     Route: 065
  2. OXALIPLATIN [Suspect]
     Indication: GASTROOESOPHAGEAL CANCER
     Dosage: GIVEN ON WEEKS 1,2, 4 AND 5
     Route: 065
  3. DOCETAXEL [Suspect]
     Indication: GASTROOESOPHAGEAL CANCER
     Dosage: GIVEN ON DAY 1, ON A 3 WEEKLY SCHEDULE
     Route: 065
  4. DOCETAXEL [Suspect]
     Indication: GASTROOESOPHAGEAL CANCER
     Dosage: GIVEN ON WEEKS 1,2, 4 AND 5
     Route: 065
  5. CAPECITABINE [Suspect]
     Indication: GASTROOESOPHAGEAL CANCER
     Dosage: GIVEN FOR 14 DAYS ON A 3 WEEKLY SCHEDULE.
     Route: 065
  6. CAPECITABINE [Suspect]
     Indication: GASTROOESOPHAGEAL CANCER
     Route: 065
  7. THERAPEUTIC RADIOPHARMACEUTICALS [Suspect]
     Indication: GASTROOESOPHAGEAL CANCER
     Dosage: DOSE: 45 GY
     Route: 065

REACTIONS (1)
  - Gastrointestinal toxicity [Unknown]
